FAERS Safety Report 9018389 (Version 1)
Quarter: 2013Q1

REPORT INFORMATION
  Report Type: Spontaneous
  Country: US (occurrence: None)
  Receive Date: 20130111
  Receipt Date: 20130111
  Transmission Date: 20140127
  Serious: Yes (Hospitalization)
  Sender: FDA-Public Use
  Company Number: None

PATIENT
  Age: 63 Year
  Sex: Female
  Weight: 173 kg

DRUGS (10)
  1. ASA [Suspect]
     Route: 048
  2. LANTUS [Concomitant]
  3. TRAMADOL [Concomitant]
  4. AMLODIPINE [Concomitant]
  5. LOSARTAN [Concomitant]
  6. CARVEDILOL [Concomitant]
  7. METFORMIN [Concomitant]
  8. LASIX [Concomitant]
  9. DOXAZOSIN [Concomitant]
  10. CRESTOR [Concomitant]

REACTIONS (3)
  - Dizziness [None]
  - Large intestine polyp [None]
  - Colon adenoma [None]
